FAERS Safety Report 5385113-2 (Version None)
Quarter: 2007Q3

REPORT INFORMATION
  Report Type: 
  Country: None (occurrence: None)
  Receive Date: 20070705
  Receipt Date: 20070705
  Transmission Date: 20080115
  Serious: Yes (Other)
  Sender: FDA-Public Use
  Company Number: None

PATIENT
  Sex: Male
  Weight: 90.7194 kg

DRUGS (1)
  1. PROPOFOL [Suspect]
     Indication: SEDATION
     Dates: start: 20061001

REACTIONS (3)
  - CHILLS [None]
  - POST PROCEDURAL COMPLICATION [None]
  - PYREXIA [None]
